FAERS Safety Report 22867717 (Version 2)
Quarter: 2023Q4

REPORT INFORMATION
  Report Type: Spontaneous
  Country: US (occurrence: US)
  Receive Date: 20230825
  Receipt Date: 20231106
  Transmission Date: 20240110
  Serious: Yes (Other)
  Sender: FDA-Public Use
  Company Number: US-JNJFOC-20230834042

PATIENT
  Age: 68 Year
  Sex: Female

DRUGS (1)
  1. DARZALEX FASPRO [Suspect]
     Active Substance: DARATUMUMAB\HYALURONIDASE-FIHJ
     Indication: Plasma cell myeloma
     Route: 058
     Dates: start: 202303

REACTIONS (6)
  - Parkinson^s disease [Unknown]
  - Urinary tract infection [Unknown]
  - Anaemia [Unknown]
  - Osteoporosis [Unknown]
  - Overdose [Unknown]
  - Infection [Unknown]
